FAERS Safety Report 5523428-5 (Version None)
Quarter: 2007Q4

REPORT INFORMATION
  Report Type: 
  Country: None (occurrence: None)
  Receive Date: 20071121
  Receipt Date: 20071102
  Transmission Date: 20080405
  Serious: Yes (Hospitalization)
  Sender: FDA-Public Use
  Company Number: US-AMGEN-US253327

PATIENT
  Sex: Female

DRUGS (13)
  1. ARANESP [Suspect]
     Indication: ANAEMIA OF MALIGNANT DISEASE
     Route: 058
     Dates: start: 20070918
  2. LASIX [Concomitant]
     Dates: start: 20070911
  3. ATROPINE [Concomitant]
  4. CARBOPLATIN [Concomitant]
  5. IRINOTECAN HCL [Concomitant]
  6. ATENOLOL [Concomitant]
  7. DYAZIDE [Concomitant]
  8. PREDNISONE TAB [Concomitant]
  9. POTASSIUM CHLORIDE [Concomitant]
  10. ALOXI [Concomitant]
  11. LORAZEPAM [Concomitant]
  12. LORTAB [Concomitant]
  13. AMBIEN [Concomitant]

REACTIONS (2)
  - BACK PAIN [None]
  - PNEUMONIA [None]
